FAERS Safety Report 8696853 (Version 4)
Quarter: 2012Q4

REPORT INFORMATION
  Report Type: Report from Study
  Country: GB (occurrence: GB)
  Receive Date: 20120801
  Receipt Date: 20120918
  Transmission Date: 20130627
  Serious: Yes (Other)
  Sender: FDA-Public Use
  Company Number: GB-ROCHE-1094369

PATIENT
  Age: 53 Year

DRUGS (5)
  1. AVASTIN [Suspect]
     Indication: MALIGNANT MELANOMA
     Dosage: Last dose prior to SAE on 03/Jul/2012 (Route of administration as per protocol), total dose of last
     Route: 042
     Dates: start: 20120327
  2. RAMIPRIL [Concomitant]
     Indication: HYPERTENSION
     Route: 065
     Dates: start: 20040518
  3. BENDROFLUMETHIAZIDE [Concomitant]
     Indication: HYPERTENSION
     Route: 065
     Dates: start: 20120503
  4. PROZAC [Concomitant]
     Indication: ANXIETY
     Route: 065
     Dates: start: 20000104
  5. LORAZEPAM [Concomitant]
     Indication: ANXIETY
     Route: 065
     Dates: start: 201206

REACTIONS (1)
  - Hepatotoxicity [Unknown]
